FAERS Safety Report 5653454-7 (Version None)
Quarter: 2008Q1

REPORT INFORMATION
  Report Type: 
  Country: None (occurrence: None)
  Receive Date: 20080306
  Receipt Date: 20080303
  Transmission Date: 20080703
  Serious: Yes (Life-Threatening, Hospitalization, Disabling)
  Sender: FDA-Public Use
  Company Number: B0511110A

PATIENT
  Age: 18 Year
  Sex: Male
  Weight: 75 kg

DRUGS (2)
  1. NELARABINE [Suspect]
     Dosage: 650MGM2 PER DAY
     Route: 042
     Dates: start: 20070606
  2. FLUDARABINE [Suspect]
     Indication: BONE MARROW TRANSPLANT
     Dosage: 40MGM2 PER DAY
     Route: 042
     Dates: start: 20071028, end: 20071031

REACTIONS (6)
  - ATAXIA [None]
  - DRUG INTERACTION [None]
  - DYSAESTHESIA [None]
  - MYELITIS TRANSVERSE [None]
  - POLYNEUROPATHY [None]
  - QUADRIPLEGIA [None]
